FAERS Safety Report 19784628 (Version 1)
Quarter: 2021Q3

REPORT INFORMATION
  Report Type: Spontaneous
  Country: IT (occurrence: IT)
  Receive Date: 20210903
  Receipt Date: 20210903
  Transmission Date: 20211014
  Serious: Yes (Other)
  Sender: FDA-Public Use
  Company Number: IT-IBIGEN-2021.10583

PATIENT
  Age: 69 Year
  Sex: Female

DRUGS (13)
  1. OXYGEN. [Concomitant]
     Active Substance: OXYGEN
     Dosage: ?
  2. SARILUMAB [Suspect]
     Active Substance: SARILUMAB
     Dosage: ?
  3. LOPINAVIR/RITONAVIR [Suspect]
     Active Substance: LOPINAVIR\RITONAVIR
  4. ENOXAPARIN [Concomitant]
     Active Substance: ENOXAPARIN
     Dosage: ()
  5. OMEPRAZOLE. [Concomitant]
     Active Substance: OMEPRAZOLE
  6. FUROSEMIDE. [Concomitant]
     Active Substance: FUROSEMIDE
  7. HYDROXYZINE [Concomitant]
     Active Substance: HYDROXYZINE HYDROCHLORIDE
  8. SPIRONOLACTONE. [Concomitant]
     Active Substance: SPIRONOLACTONE
  9. IOPAMIDOL [Suspect]
     Active Substance: IOPAMIDOL
     Dosage: ?
  10. PIPERACILLIN/TAZOBACTAM [Suspect]
     Active Substance: PIPERACILLIN SODIUM\TAZOBACTAM SODIUM
  11. LEVOFLOXACINE [LEVOFLOXACIN] [Concomitant]
     Active Substance: LEVOFLOXACIN
  12. HYDROXYCHLOROQUINE [Suspect]
     Active Substance: HYDROXYCHLOROQUINE
     Dosage: ?
  13. PREDNISONE. [Concomitant]
     Active Substance: PREDNISONE

REACTIONS (1)
  - Drug reaction with eosinophilia and systemic symptoms [Recovered/Resolved]
